FAERS Safety Report 7404303-8 (Version None)
Quarter: 2011Q2

REPORT INFORMATION
  Report Type: 
  Country: None (occurrence: None)
  Receive Date: 20110408
  Receipt Date: 20110330
  Transmission Date: 20111010
  Serious: Yes (Other)
  Sender: FDA-Public Use
  Company Number: US-JNJFOC-20110400583

PATIENT
  Sex: Male
  Weight: 101.61 kg

DRUGS (3)
  1. FLOMAX [Concomitant]
     Indication: PROSTATIC DISORDER
  2. AVODART [Concomitant]
     Indication: PROSTATIC DISORDER
  3. STELARA [Suspect]
     Indication: PSORIASIS
     Route: 058

REACTIONS (5)
  - HEPATIC NEOPLASM MALIGNANT [None]
  - FATIGUE [None]
  - MUSCULOSKELETAL PAIN [None]
  - DRUG INEFFECTIVE [None]
  - CHOLECYSTITIS [None]
